FAERS Safety Report 23670523 (Version 6)
Quarter: 2024Q4

REPORT INFORMATION
  Report Type: Spontaneous
  Country: CA (occurrence: CA)
  Receive Date: 20240326
  Receipt Date: 20241105
  Transmission Date: 20250114
  Serious: Yes (Hospitalization, Other)
  Sender: TAKEDA
  Company Number: CA-TAKEDA-2024TUS025834

PATIENT
  Age: 49 Year
  Sex: Female
  Weight: 116 kg

DRUGS (3)
  1. HUMAN IMMUNOGLOBULIN G [Suspect]
     Active Substance: HUMAN IMMUNOGLOBULIN G
     Indication: Secondary immunodeficiency
     Dosage: 30 GRAM
     Route: 065
     Dates: start: 20230623
  2. HYQVIA [Suspect]
     Active Substance: HUMAN IMMUNOGLOBULIN G\HYALURONIDASE (HUMAN RECOMBINANT)
     Indication: Hypogammaglobulinaemia
     Dosage: 4.8 GRAM
     Route: 042
  3. HYQVIA [Suspect]
     Active Substance: HUMAN IMMUNOGLOBULIN G\HYALURONIDASE (HUMAN RECOMBINANT)
     Indication: Secondary immunodeficiency
     Dosage: 30 GRAM, MONTHLY
     Route: 065
     Dates: start: 20230623

REACTIONS (26)
  - Altered state of consciousness [Recovered/Resolved]
  - Presyncope [Recovered/Resolved]
  - Hypoperfusion [Recovered/Resolved]
  - Hyperhidrosis [Recovered/Resolved]
  - Vomiting [Recovered/Resolved]
  - Hypotension [Recovered/Resolved]
  - Chills [Recovered/Resolved]
  - Dizziness [Recovered/Resolved]
  - Nausea [Recovered/Resolved]
  - Depressed level of consciousness [Recovered/Resolved]
  - Consciousness fluctuating [Recovered/Resolved]
  - Gastrointestinal disorder [Recovered/Resolved]
  - Haemoglobin decreased [Unknown]
  - Blood bilirubin decreased [Unknown]
  - Rhinovirus infection [Recovered/Resolved]
  - Diffuse large B-cell lymphoma [Unknown]
  - Fall [Unknown]
  - Infertility [Unknown]
  - Vascular device infection [Recovered/Resolved]
  - Febrile nonhaemolytic transfusion reaction [Recovered/Resolved]
  - Vomiting projectile [Recovered/Resolved]
  - Shock [Recovered/Resolved]
  - Anaphylactoid reaction [Recovered/Resolved]
  - Cold sweat [Recovered/Resolved]
  - Peripheral coldness [Recovered/Resolved]
  - Off label use [Unknown]

NARRATIVE: CASE EVENT DATE: 20230623
